FAERS Safety Report 8164538-6 (Version None)
Quarter: 2012Q1

REPORT INFORMATION
  Report Type: 
  Country: None (occurrence: None)
  Receive Date: 20120224
  Receipt Date: 20120220
  Transmission Date: 20120608
  Serious: Yes (Death, Other)
  Sender: FDA-Public Use
  Company Number: US-ASTRAZENECA-2012SE06077

PATIENT
  Age: 61 Year
  Sex: Male
  Weight: 88.5 kg

DRUGS (29)
  1. LISINOPRIL [Suspect]
     Dosage: 2.5 DAY
     Route: 048
  2. SUBLINQUAL B12 [Concomitant]
     Dosage: UNKNOWN DOSE TWO TIMES DAILY
  3. CONTINUOUS OXYGEN [Concomitant]
  4. PREVACID [Concomitant]
  5. LEVEMIR [Concomitant]
  6. METFORM 500 [Concomitant]
  7. ASTELIN [Concomitant]
     Dosage: 1 SPRAY EACH NOSTRIL DAILY
     Route: 045
  8. NAPROXEN (ALEVE) [Concomitant]
  9. SEROQUEL [Suspect]
     Indication: MENTAL STATUS CHANGES
     Route: 048
     Dates: start: 20100101
  10. PREDNISONE [Concomitant]
  11. EXCEDRIN PM CAPLETS [Concomitant]
     Dosage: UNKNOWN DOSE AT NIGHT
  12. MAGNESIUM OXIDE [Concomitant]
  13. CALTRATE + VITAMIN D [Concomitant]
     Dosage: UNKNOWN DOSE DAILY
  14. NORCO [Concomitant]
     Dosage: 7.5/325 TWO TIMES DAILY
  15. ULTRACET [Concomitant]
  16. IMDUR [Suspect]
     Route: 048
  17. CYMBALTA [Concomitant]
  18. HUMALOG [Concomitant]
     Dosage: 10 UNITS AT BREAKFAST, 15 UNITS AT LUNCH AND 20 UNITS AT DINNER
  19. ASPIRIN [Concomitant]
     Dosage: UNKNOWN DOSE DAILY
  20. LOPRESSOR [Concomitant]
  21. FUROSEMIDE [Concomitant]
  22. L-LYSINE [Concomitant]
  23. SYMBICORT [Suspect]
     Dosage: 160/4.5 MCG BID 1 PUFF
     Route: 055
  24. XOPENEX [Concomitant]
     Dosage: 2 PUFFS QID
     Route: 055
  25. PROVASTIN [Concomitant]
  26. ALBUTELOR NEBULIZER [Concomitant]
     Dosage: 1.25 QID PRN
  27. POTASSIUM CHLORIDE [Concomitant]
     Dosage: 20 1 TABS DAILY
  28. AMIODARONE HCL [Concomitant]
  29. ANTIVERT [Concomitant]
     Dosage: 25 MG TID PRN

REACTIONS (5)
  - CARDIAC FAILURE CONGESTIVE [None]
  - WHITE BLOOD CELL COUNT DECREASED [None]
  - MENINGITIS CRYPTOCOCCAL [None]
  - FATIGUE [None]
  - MALIGNANT PLEURAL EFFUSION [None]
